FAERS Safety Report 16867773 (Version 4)
Quarter: 2020Q4

REPORT INFORMATION
  Report Type: Spontaneous
  Country: US (occurrence: US)
  Receive Date: 20190930
  Receipt Date: 20201222
  Transmission Date: 20210113
  Serious: Yes (Hospitalization, Other)
  Sender: FDA-Public Use
  Company Number: US-ASTRAZENECA-2019SF35810

PATIENT
  Age: 17553 Day
  Sex: Male
  Weight: 107 kg

DRUGS (50)
  1. FARXIGA [Suspect]
     Active Substance: DAPAGLIFLOZIN PROPANEDIOL
     Indication: HYPOTENSION
     Route: 048
     Dates: start: 20181205
  2. HCTZ [Concomitant]
     Active Substance: HYDROCHLOROTHIAZIDE
     Route: 065
     Dates: start: 20170803
  3. CIPRO [Concomitant]
     Active Substance: CIPROFLOXACIN HYDROCHLORIDE
     Route: 065
  4. CEPHALEXIN. [Concomitant]
     Active Substance: CEPHALEXIN
     Route: 065
  5. LIPITOR [Concomitant]
     Active Substance: ATORVASTATIN CALCIUM
     Route: 065
  6. SODIUM CHLORIDE. [Concomitant]
     Active Substance: SODIUM CHLORIDE
     Route: 065
  7. LABETALOL [Concomitant]
     Active Substance: LABETALOL\LABETALOL HYDROCHLORIDE
     Route: 065
  8. ERGOCALCIFEROL. [Concomitant]
     Active Substance: ERGOCALCIFEROL
     Route: 065
  9. ZOFRAN [Concomitant]
     Active Substance: ONDANSETRON HYDROCHLORIDE
     Route: 065
  10. FARXIGA [Suspect]
     Active Substance: DAPAGLIFLOZIN PROPANEDIOL
     Indication: WEIGHT DECREASED
     Route: 048
     Dates: start: 20180921
  11. METFORMIN [Concomitant]
     Active Substance: METFORMIN HYDROCHLORIDE
     Route: 065
     Dates: start: 20170803
  12. SIMVASTATIN. [Concomitant]
     Active Substance: SIMVASTATIN
     Route: 065
  13. GLUCAGON. [Concomitant]
     Active Substance: GLUCAGON
     Route: 065
  14. FARXIGA [Suspect]
     Active Substance: DAPAGLIFLOZIN PROPANEDIOL
     Indication: TYPE 2 DIABETES MELLITUS
     Route: 048
     Dates: start: 201808, end: 201812
  15. FARXIGA [Suspect]
     Active Substance: DAPAGLIFLOZIN PROPANEDIOL
     Indication: TYPE 2 DIABETES MELLITUS
     Route: 048
     Dates: start: 20181205
  16. MORPHINE [Concomitant]
     Active Substance: MORPHINE
     Route: 065
  17. SYNTHROID [Concomitant]
     Active Substance: LEVOTHYROXINE SODIUM
     Route: 065
  18. AMLODIPINE [Concomitant]
     Active Substance: AMLODIPINE BESYLATE
     Route: 065
  19. AMITRIPTYLINE [Concomitant]
     Active Substance: AMITRIPTYLINE
     Route: 065
  20. GLUTOSE [Concomitant]
     Active Substance: DEXTROSE
     Route: 065
  21. HYDROMORPHONE [Concomitant]
     Active Substance: HYDROMORPHONE
     Route: 065
  22. HYDROMORPHONE [Concomitant]
     Active Substance: HYDROMORPHONE
     Route: 065
  23. FARXIGA [Suspect]
     Active Substance: DAPAGLIFLOZIN PROPANEDIOL
     Indication: HYPOTENSION
     Route: 048
     Dates: start: 201808, end: 201812
  24. VANCOMYCIN [Concomitant]
     Active Substance: VANCOMYCIN
     Route: 065
  25. BACTRIM [Concomitant]
     Active Substance: SULFAMETHOXAZOLE\TRIMETHOPRIM
     Route: 065
  26. AUGMENTIN [Concomitant]
     Active Substance: AMOXICILLIN\CLAVULANATE POTASSIUM
     Route: 065
  27. MECLIZINE [Concomitant]
     Active Substance: MECLIZINE HYDROCHLORIDE
     Route: 065
  28. TRAMADOL. [Concomitant]
     Active Substance: TRAMADOL
     Route: 065
  29. IBUPROFEN. [Concomitant]
     Active Substance: IBUPROFEN
     Route: 065
  30. NOVOLOG [Concomitant]
     Active Substance: INSULIN ASPART
     Route: 065
  31. MIRALAX [Concomitant]
     Active Substance: POLYETHYLENE GLYCOL 3350
     Route: 065
  32. TORADOL [Concomitant]
     Active Substance: KETOROLAC TROMETHAMINE
     Route: 065
  33. CARVEDILOL. [Concomitant]
     Active Substance: CARVEDILOL
     Route: 065
  34. ORPHENADRINE [Concomitant]
     Active Substance: ORPHENADRINE
     Route: 065
  35. FARXIGA [Suspect]
     Active Substance: DAPAGLIFLOZIN PROPANEDIOL
     Indication: HYPOTENSION
     Route: 048
     Dates: start: 20180921
  36. LISINOPRIL. [Concomitant]
     Active Substance: LISINOPRIL
     Route: 065
     Dates: start: 20170803
  37. DICLOFENAC [Concomitant]
     Active Substance: DICLOFENAC
     Route: 065
  38. VITAMIN C [Concomitant]
     Active Substance: ASCORBIC ACID
     Route: 065
  39. POTASSIUM [Concomitant]
     Active Substance: POTASSIUM
     Route: 065
  40. FARXIGA [Suspect]
     Active Substance: DAPAGLIFLOZIN PROPANEDIOL
     Indication: WEIGHT DECREASED
     Route: 048
     Dates: start: 20181205
  41. FARXIGA [Suspect]
     Active Substance: DAPAGLIFLOZIN PROPANEDIOL
     Indication: TYPE 2 DIABETES MELLITUS
     Route: 048
     Dates: start: 20180921
  42. HYDROCODONE BITARTRATE AND ACETAMINOPHEN [Concomitant]
     Active Substance: ACETAMINOPHEN\HYDROCODONE BITARTRATE
     Route: 065
  43. NICOTINE. [Concomitant]
     Active Substance: NICOTINE
     Route: 065
  44. FARXIGA [Suspect]
     Active Substance: DAPAGLIFLOZIN PROPANEDIOL
     Indication: WEIGHT DECREASED
     Route: 048
     Dates: start: 201808, end: 201812
  45. LANTUS [Concomitant]
     Active Substance: INSULIN GLARGINE
     Dosage: 15 UNITS TWICE DAILY
     Route: 065
     Dates: start: 20170803
  46. ZOSYN [Concomitant]
     Active Substance: PIPERACILLIN SODIUM\TAZOBACTAM SODIUM
     Route: 065
  47. MEDROL [Concomitant]
     Active Substance: METHYLPREDNISOLONE
     Route: 065
  48. MONODOX [Concomitant]
     Active Substance: DOXYCYCLINE
     Route: 065
  49. GABAPENTIN. [Concomitant]
     Active Substance: GABAPENTIN
     Route: 065
  50. MULTIVITAMIN [Concomitant]
     Active Substance: VITAMINS
     Route: 065

REACTIONS (12)
  - Urinary tract infection [Unknown]
  - Cellulitis [Unknown]
  - Testicular abscess [Unknown]
  - Subcutaneous abscess [Unknown]
  - Cellulitis of male external genital organ [Unknown]
  - Necrosis [Unknown]
  - Testicular necrosis [Unknown]
  - Abscess limb [Unknown]
  - Testicular pain [Unknown]
  - Orchitis [Unknown]
  - Hydrocele [Unknown]
  - Leukocytosis [Unknown]

NARRATIVE: CASE EVENT DATE: 20181122
